FAERS Safety Report 4821871-0 (Version None)
Quarter: 2005Q4

REPORT INFORMATION
  Report Type: 
  Country: None (occurrence: None)
  Receive Date: 20051103
  Receipt Date: 20050419
  Transmission Date: 20060501
  Serious: Yes (Death, Hospitalization)
  Sender: FDA-Public Use
  Company Number: EWC031136890

PATIENT
  Age: 22 Year
  Sex: Female
  Weight: 53 kg

DRUGS (5)
  1. PROZAC [Suspect]
     Indication: ANXIETY
     Dosage: 40 MG/ DAY
     Dates: start: 20000318
  2. CLONAZEPAM [Concomitant]
  3. CLOPIXOL (ZUCLOPENTHIXOL DECANOATE) [Concomitant]
  4. SANDOMIGRAN (PIZOTIFENA MALEATE) [Concomitant]
  5. EPILIM (VALPROATE SODIUM) [Concomitant]

REACTIONS (29)
  - ABNORMAL DREAMS [None]
  - AGITATION [None]
  - AGORAPHOBIA [None]
  - ALCOHOL USE [None]
  - ANXIETY [None]
  - BORDERLINE PERSONALITY DISORDER [None]
  - CONFUSIONAL STATE [None]
  - DEPRESSION [None]
  - DISTURBANCE IN ATTENTION [None]
  - DRUG DEPENDENCE [None]
  - DRUG WITHDRAWAL SYNDROME [None]
  - EMOTIONAL DISTRESS [None]
  - FEELING ABNORMAL [None]
  - FLUSHING [None]
  - HISTRIONIC PERSONALITY DISORDER [None]
  - HYPERVENTILATION [None]
  - INJURY ASPHYXIATION [None]
  - INTENTIONAL OVERDOSE [None]
  - INTENTIONAL SELF-INJURY [None]
  - JOB CHANGE [None]
  - LACERATION [None]
  - LOSS OF CONSCIOUSNESS [None]
  - LUTEAL PHASE DEFICIENCY [None]
  - NASAL CONGESTION [None]
  - PANIC ATTACK [None]
  - PHARYNGOLARYNGEAL PAIN [None]
  - PREMENSTRUAL SYNDROME [None]
  - PYREXIA [None]
  - SUICIDAL IDEATION [None]
